FAERS Safety Report 8878422 (Version 1)
Quarter: 2012Q4

REPORT INFORMATION
  Report Type: 
  Country: US (occurrence: US)
  Receive Date: 20121025
  Receipt Date: 20121025
  Transmission Date: 20130627
  Serious: No
  Sender: FDA-Public Use
  Company Number: US-AMGEN-USASP2012014847

PATIENT
  Age: 71 Year
  Sex: Female
  Weight: 47.62 kg

DRUGS (14)
  1. ENBREL [Suspect]
     Indication: PRODUCT USED FOR UNKNOWN INDICATION
     Dosage: 50 mg, qwk
     Route: 058
  2. PAXIL [Concomitant]
     Dosage: 20 mg, UNK
  3. FISH OIL [Concomitant]
     Dosage: UNK
  4. METOPROLOL [Concomitant]
     Dosage: 100 mg, UNK
  5. PROCARDIA                          /00340701/ [Concomitant]
     Dosage: 10 mg, UNK
  6. XANAX [Concomitant]
     Dosage: 0.25 mg, UNK
  7. ZANTAC [Concomitant]
     Dosage: 300 mg, UNK
  8. SALINE                             /00075401/ [Concomitant]
     Dosage: 0.65 %, UNK
  9. ECONAZOLE [Concomitant]
  10. LACTAID [Concomitant]
  11. GENTEAL                            /00445101/ [Concomitant]
  12. MYLANTA                            /00036701/ [Concomitant]
  13. NIFEDIPINE [Concomitant]
  14. GINGER                             /01646602/ [Concomitant]

REACTIONS (4)
  - Blepharitis [Unknown]
  - Balance disorder [Unknown]
  - Rash [Unknown]
  - Tinea infection [Unknown]
